FAERS Safety Report 22854442 (Version 2)
Quarter: 2023Q4

REPORT INFORMATION
  Report Type: Spontaneous
  Country: IT (occurrence: IT)
  Receive Date: 20230823
  Receipt Date: 20231024
  Transmission Date: 20240109
  Serious: Yes (Other)
  Sender: FDA-Public Use
  Company Number: IT-UCBSA-2023038610

PATIENT
  Sex: Female
  Weight: 50 kg

DRUGS (5)
  1. BRIVARACETAM [Suspect]
     Active Substance: BRIVARACETAM
     Indication: Epilepsy
     Dosage: 10 MILLIGRAM, 2X/DAY (BID)
     Dates: start: 2023, end: 2023
  2. BRIVARACETAM [Suspect]
     Active Substance: BRIVARACETAM
     Dosage: 2.5 MILLILITER,UNK
     Dates: end: 2023
  3. BRIVARACETAM [Suspect]
     Active Substance: BRIVARACETAM
     Indication: Epilepsy
     Dosage: 25 MILLIGRAM,UNK
     Dates: start: 2023, end: 2023
  4. LAMOTRIGINE [Concomitant]
     Active Substance: LAMOTRIGINE
     Indication: Product used for unknown indication
     Dosage: 50 MG IN THE MORNING AND 50 MG IN THE EVENING
  5. CLOBAZAM [Concomitant]
     Active Substance: CLOBAZAM
     Indication: Product used for unknown indication
     Dosage: 3 MILLIGRAM DAILY

REACTIONS (10)
  - Petit mal epilepsy [Recovered/Resolved]
  - Epilepsy [Unknown]
  - Headache [Recovered/Resolved]
  - Somnolence [Unknown]
  - Nausea [Unknown]
  - Eating disorder [Unknown]
  - Weight decreased [Unknown]
  - Product supply issue [Unknown]
  - Drug ineffective [Unknown]
  - Off label use [Unknown]

NARRATIVE: CASE EVENT DATE: 20230101
